FAERS Safety Report 10353137 (Version 1)
Quarter: 2014Q3

REPORT INFORMATION
  Report Type: Spontaneous
  Country: US (occurrence: US)
  Receive Date: 20140730
  Receipt Date: 20140730
  Transmission Date: 20150326
  Serious: Yes (Death, Hospitalization)
  Sender: FDA-Public Use
  Company Number: US-B.I. PHARMACEUTICALS,INC./RIDGEFIELD-2014-BI-34340BP

PATIENT
  Age: 55 Year
  Sex: Male

DRUGS (6)
  1. PRADAXA [Suspect]
     Active Substance: DABIGATRAN ETEXILATE MESYLATE
     Indication: ATRIAL FIBRILLATION
     Route: 065
     Dates: end: 20120812
  2. METOPROLOL [Concomitant]
     Active Substance: METOPROLOL
     Dosage: 200 MG
     Route: 065
  3. NEXIUM [Concomitant]
     Active Substance: ESOMEPRAZOLE MAGNESIUM
     Route: 065
  4. HCTZ [Concomitant]
     Active Substance: HYDROCHLOROTHIAZIDE
     Dosage: DOSE PER APPLICATION AND DAILY DOSE: 160/25 MG
     Route: 065
  5. ASPIRIN. [Concomitant]
     Active Substance: ASPIRIN
     Dosage: 81 MG
     Route: 065
     Dates: end: 20120812
  6. DIOVAN [Concomitant]
     Active Substance: VALSARTAN
     Route: 065

REACTIONS (3)
  - Haemoptysis [Fatal]
  - Haematochezia [Unknown]
  - Thrombocytopenia [Fatal]

NARRATIVE: CASE EVENT DATE: 20120812
